FAERS Safety Report 6469250-7 (Version None)
Quarter: 2009Q4

REPORT INFORMATION
  Report Type: 
  Country: None (occurrence: None)
  Receive Date: 20091203
  Receipt Date: 20071127
  Transmission Date: 20100525
  Serious: Yes (Hospitalization, Other)
  Sender: FDA-Public Use
  Company Number: FR-LLY01-FR200709001407

PATIENT
  Sex: Male
  Weight: 76.2 kg

DRUGS (8)
  1. ZYPREXA [Suspect]
     Indication: BIPOLAR DISORDER
     Dosage: 20 MG, DAILY (1/D)
     Route: 048
     Dates: start: 20061001
  2. SECTRAL [Concomitant]
     Indication: MYOCARDIAL INFARCTION
     Dosage: 300 MG, DAILY (1/D)
     Route: 048
     Dates: start: 20000101
  3. KARDEGIC [Concomitant]
     Indication: MYOCARDIAL INFARCTION
     Dosage: 75 MG, DAILY (1/D)
     Route: 048
     Dates: start: 20000101
  4. TAHOR [Concomitant]
     Indication: ISCHAEMIC HEART DISEASE PROPHYLAXIS
     Dosage: 80 MG, DAILY (1/D)
     Route: 048
     Dates: start: 20000101
  5. TRANXENE [Concomitant]
     Indication: BIPOLAR DISORDER
     Dosage: 60 MG, DAILY (1/D)
     Route: 048
  6. TEGRETOL [Concomitant]
     Indication: BIPOLAR DISORDER
     Dosage: 800 MG, DAILY (1/D)
     Route: 048
  7. SEROPLEX [Concomitant]
     Indication: BIPOLAR DISORDER
     Dosage: 50 MG, DAILY (1/D)
     Route: 048
  8. MOPRAL [Concomitant]
     Dosage: 20 MG, DAILY (1/D)

REACTIONS (11)
  - ACUTE CORONARY SYNDROME [None]
  - BLOOD ALKALINE PHOSPHATASE INCREASED [None]
  - GAMMA-GLUTAMYLTRANSFERASE INCREASED [None]
  - HEPATIC STEATOSIS [None]
  - HYPERCHOLESTEROLAEMIA [None]
  - HYPERTRIGLYCERIDAEMIA [None]
  - INSULIN-REQUIRING TYPE 2 DIABETES MELLITUS [None]
  - RED BLOOD CELL SEDIMENTATION RATE INCREASED [None]
  - SERUM FERRITIN INCREASED [None]
  - TYPE 2 DIABETES MELLITUS [None]
  - WEIGHT INCREASED [None]
